FAERS Safety Report 9215111 (Version 1)
Quarter: 2013Q2

REPORT INFORMATION
  Report Type: Spontaneous
  Country: US (occurrence: US)
  Receive Date: 20130405
  Receipt Date: 20130405
  Transmission Date: 20140414
  Serious: Yes (Other)
  Sender: FDA-Public Use
  Company Number: US-ASTRAZENECA-2013SE20965

PATIENT
  Age: 623 Month
  Sex: Female
  Weight: 63.5 kg

DRUGS (9)
  1. TOPROL XL [Suspect]
     Indication: HYPERTENSION
     Route: 048
  2. SEROQUEL [Suspect]
     Indication: SCHIZOPHRENIA
     Route: 048
  3. ABILIFY [Suspect]
     Indication: SCHIZOPHRENIA
     Route: 065
  4. GEODON [Suspect]
     Indication: SCHIZOPHRENIA
     Route: 065
     Dates: start: 2008
  5. GEODON [Suspect]
     Indication: SCHIZOPHRENIA
     Route: 065
     Dates: start: 201303
  6. ZYPREXA [Suspect]
     Indication: SCHIZOPHRENIA
     Route: 065
  7. RISPERDAL [Suspect]
     Indication: SCHIZOPHRENIA
     Route: 065
  8. UNSPECIFIED ATYPICAL ANTIPSYCHOTICS [Suspect]
     Indication: SCHIZOPHRENIA
     Route: 065
  9. NORVASC [Concomitant]
     Indication: HYPERTENSION

REACTIONS (6)
  - Adverse event [Unknown]
  - Weight increased [Unknown]
  - Adverse drug reaction [Unknown]
  - Anxiety [Not Recovered/Not Resolved]
  - Blood cholesterol increased [Unknown]
  - Intentional drug misuse [Not Recovered/Not Resolved]
